FAERS Safety Report 7112737-4 (Version None)
Quarter: 2010Q4

REPORT INFORMATION
  Report Type: 
  Country: None (occurrence: None)
  Receive Date: 20101119
  Receipt Date: 20101112
  Transmission Date: 20110411
  Serious: Yes (Hospitalization)
  Sender: FDA-Public Use
  Company Number: DE-BRISTOL-MYERS SQUIBB COMPANY-14818504

PATIENT
  Age: 71 Year
  Sex: Male
  Weight: 81 kg

DRUGS (14)
  1. CISPLATIN [Suspect]
     Indication: NON-SMALL CELL LUNG CANCER
     Dosage: LAST DOSE: 29SEP09
     Route: 042
     Dates: start: 20090901
  2. CETUXIMAB [Suspect]
     Indication: NON-SMALL CELL LUNG CANCER
     Dosage: ON DAY 1 CYCLE 1 THEN 250MG/M2 WEEKLY; LAST DOSE: 29SEP09
     Route: 042
     Dates: start: 20090901
  3. ALIMTA [Suspect]
     Indication: NON-SMALL CELL LUNG CANCER
     Dosage: LAST DOSE: 29SEP09
     Route: 042
     Dates: start: 20090901
  4. FOLIC ACID [Concomitant]
     Indication: PROPHYLAXIS
  5. VITAMIN B-12 [Concomitant]
     Indication: PROPHYLAXIS
  6. CORTICOSTEROID [Concomitant]
     Indication: PROPHYLAXIS
  7. ANTIHISTAMINE NOS [Concomitant]
     Indication: PROPHYLAXIS
  8. PANTOPRAZOLE SODIUM [Concomitant]
     Dates: start: 20091004
  9. TOREM [Concomitant]
     Dates: start: 20091004
  10. KALINOR [Concomitant]
     Dates: start: 20091004
  11. ZOFRAN [Concomitant]
     Dates: start: 20091004
  12. FORTECORTIN [Concomitant]
     Dates: start: 20091004
  13. DELTAJONIN [Concomitant]
     Dates: start: 20091004
  14. FOLSAN [Concomitant]
     Dates: start: 20091004

REACTIONS (4)
  - ABDOMINAL PAIN [None]
  - DIARRHOEA [None]
  - FATIGUE [None]
  - MUCOSAL INFLAMMATION [None]
